FAERS Safety Report 9731464 (Version 2)
Quarter: 2014Q1

REPORT INFORMATION
  Report Type: Spontaneous
  Country: NZ (occurrence: NZ)
  Receive Date: 20131203
  Receipt Date: 20140107
  Transmission Date: 20141002
  Serious: Yes (Hospitalization)
  Sender: FDA-Public Use
  Company Number: NZ-B.I. PHARMACEUTICALS,INC./RIDGEFIELD-2013-BI-39418AU

PATIENT
  Sex: Male
  Weight: 77.5 kg

DRUGS (9)
  1. PRADAXA [Suspect]
     Indication: ATRIAL FIBRILLATION
     Dosage: 220 MG
     Dates: end: 20130827
  2. WARFARIN [Suspect]
  3. LEVOTHYROXINE [Concomitant]
  4. HYTRIN [Concomitant]
  5. INHIBACE [Concomitant]
  6. SIMVASTATIN [Concomitant]
  7. FRUSEMIDE [Concomitant]
  8. METOPROLOL [Concomitant]
     Dosage: 50 MG
  9. LOSEC [Concomitant]
     Dosage: 20 MG

REACTIONS (2)
  - International normalised ratio abnormal [Unknown]
  - Myalgia [Recovered/Resolved]
